FAERS Safety Report 17791840 (Version 2)
Quarter: 2021Q2

REPORT INFORMATION
  Report Type: Spontaneous
  Country: US (occurrence: US)
  Receive Date: 20200515
  Receipt Date: 20210408
  Transmission Date: 20210716
  Serious: No
  Sender: FDA-Public Use
  Company Number: US-EMERGENT BIOSOLUTIONS,-20000240SP

PATIENT
  Age: 54 Year
  Sex: Female
  Weight: 99.77 kg

DRUGS (4)
  1. INSULIN [Concomitant]
     Active Substance: INSULIN NOS
     Route: 065
  2. TYLENOL WITH CODEINE [Concomitant]
     Active Substance: ACETAMINOPHEN\CODEINE PHOSPHATE
     Indication: PAIN
     Dosage: 1 DOSAGE FORM, Q6H
  3. XANAX [Concomitant]
     Active Substance: ALPRAZOLAM
     Dosage: UNK, BID
     Route: 065
  4. NARCAN [Suspect]
     Active Substance: NALOXONE HYDROCHLORIDE
     Indication: PRODUCT USED FOR UNKNOWN INDICATION
     Dosage: 4 MILLIGRAM
     Route: 045
     Dates: start: 20200313

REACTIONS (2)
  - Product use complaint [Unknown]
  - Unintentional use for unapproved indication [Unknown]

NARRATIVE: CASE EVENT DATE: 20200313
